FAERS Safety Report 4438838-7 (Version None)
Quarter: 2004Q3

REPORT INFORMATION
  Report Type: 
  Country: None (occurrence: None)
  Receive Date: 20040901
  Receipt Date: 20031224
  Transmission Date: 20050211
  Serious: Yes (Hospitalization)
  Sender: FDA-Public Use
  Company Number: DE-BRISTOL-MYERS SQUIBB COMPANY-12464871

PATIENT
  Age: 71 Year
  Weight: 76 kg

DRUGS (2)
  1. PACLITAXEL [Suspect]
     Indication: NON-SMALL CELL LUNG CANCER
     Dosage: 225 MG/M2
     Route: 042
     Dates: start: 20030917, end: 20031120
  2. CARBOPLATIN [Suspect]
     Indication: NON-SMALL CELL LUNG CANCER
     Dosage: 225 MG/M2; AUC 6
     Route: 042
     Dates: start: 20030917, end: 20031120

REACTIONS (1)
  - FAILURE TO THRIVE [None]
